FAERS Safety Report 14023354 (Version 2)
Quarter: 2017Q4

REPORT INFORMATION
  Report Type: Report from Study
  Country: CA (occurrence: CA)
  Receive Date: 20170929
  Receipt Date: 20171016
  Transmission Date: 20180321
  Serious: Yes (Other)
  Sender: FDA-Public Use
  Company Number: CA-JNJFOC-20170927865

PATIENT
  Age: 12 Year
  Sex: Female
  Weight: 42 kg

DRUGS (2)
  1. REMICADE [Suspect]
     Active Substance: INFLIXIMAB
     Indication: CROHN^S DISEASE
     Dosage: STRENGTH = 100 MG
     Route: 042
     Dates: start: 20141205
  2. MTX [Concomitant]
     Active Substance: METHOTREXATE SODIUM
     Indication: CROHN^S DISEASE
     Route: 048

REACTIONS (5)
  - Haematochezia [Recovered/Resolved]
  - Abdominal pain [Unknown]
  - Off label use [Unknown]
  - Product use issue [Unknown]
  - Drug level decreased [Unknown]

NARRATIVE: CASE EVENT DATE: 20141205
